FAERS Safety Report 7345997-5 (Version None)
Quarter: 2011Q1

REPORT INFORMATION
  Report Type: 
  Country: None (occurrence: None)
  Receive Date: 20110307
  Receipt Date: 20110307
  Transmission Date: 20110831
  Serious: Yes (Other)
  Sender: FDA-Public Use
  Company Number: None

PATIENT
  Age: 34 Year
  Sex: Female
  Weight: 63.5036 kg

DRUGS (1)
  1. OXYCONTIN [Suspect]
     Indication: PAIN MANAGEMENT
     Dosage: 80MG 3 DAILY PO
     Route: 048
     Dates: start: 20050101, end: 20110303

REACTIONS (6)
  - PRODUCT SUBSTITUTION ISSUE [None]
  - FOREIGN BODY [None]
  - HEADACHE [None]
  - NAUSEA [None]
  - DRUG WITHDRAWAL SYNDROME [None]
  - INTESTINAL FUNCTIONAL DISORDER [None]
